FAERS Safety Report 24254786 (Version 1)
Quarter: 2024Q3

REPORT INFORMATION
  Report Type: Spontaneous
  Country: DE (occurrence: DE)
  Receive Date: 20240827
  Receipt Date: 20240827
  Transmission Date: 20241017
  Serious: Yes (Other)
  Sender: MYLAN
  Company Number: DE-LESVI-2024004331

PATIENT
  Age: 46 Year
  Sex: Male

DRUGS (5)
  1. CLOZAPINE [Suspect]
     Active Substance: CLOZAPINE
     Indication: Restlessness
     Dosage: 2X100MG + 1 FOURTH TABLET IN THE EVENING (THE INTAKE MAY BE MUCH LOWER)
     Route: 065
  2. CLOZAPINE [Suspect]
     Active Substance: CLOZAPINE
     Indication: Persecutory delusion
  3. CLOZAPINE [Suspect]
     Active Substance: CLOZAPINE
     Indication: Sleep disorder
  4. METFORMIN [Concomitant]
     Active Substance: METFORMIN HYDROCHLORIDE
     Indication: Diabetes mellitus
     Dosage: UNK 1000
     Route: 065
  5. ST. JOHN^S WORT [Concomitant]
     Active Substance: ST. JOHN^S WORT
     Indication: Depressed mood
     Dosage: UNK
     Route: 065

REACTIONS (8)
  - Diabetes mellitus [Recovering/Resolving]
  - Weight decreased [Unknown]
  - Gait disturbance [Unknown]
  - Soliloquy [Not Recovered/Not Resolved]
  - Listless [Unknown]
  - Fatigue [Unknown]
  - Confusional state [Not Recovered/Not Resolved]
  - Intentional product use issue [Unknown]
